FAERS Safety Report 6765762-7 (Version None)
Quarter: 2010Q2

REPORT INFORMATION
  Report Type: 
  Country: None (occurrence: None)
  Receive Date: 20100611
  Receipt Date: 20100608
  Transmission Date: 20101027
  Serious: Yes (Death)
  Sender: FDA-Public Use
  Company Number: US-SANOFI-AVENTIS-2010SA016443

PATIENT
  Sex: Male
  Weight: 100 kg

DRUGS (15)
  1. ELITEK [Suspect]
     Indication: PROPHYLAXIS
     Route: 042
     Dates: start: 20091217, end: 20091221
  2. RITUXAN [Suspect]
     Indication: BURKITT'S LYMPHOMA
     Route: 065
  3. DIPHENHYDRAMINE HYDROCHLORIDE [Concomitant]
     Indication: PREMEDICATION
     Dates: start: 20091217
  4. ALOXI [Concomitant]
     Indication: PREMEDICATION
     Dates: start: 20091217
  5. DEXAMETHASONE [Concomitant]
     Indication: PREMEDICATION
     Route: 042
     Dates: start: 20091217
  6. DEXAMETHASONE [Concomitant]
     Route: 048
     Dates: start: 20091215
  7. PEPCID [Concomitant]
     Indication: PREMEDICATION
     Route: 042
     Dates: start: 20091217
  8. TYLENOL (CAPLET) [Concomitant]
     Indication: PREMEDICATION
     Route: 048
     Dates: start: 20091217
  9. ALLOPURINOL [Concomitant]
     Route: 048
     Dates: start: 20091216, end: 20091216
  10. ALLOPURINOL [Concomitant]
     Indication: PROPHYLAXIS
     Route: 048
     Dates: start: 20091216, end: 20091216
  11. ALLOPURINOL [Concomitant]
     Route: 048
     Dates: start: 20091217, end: 20091217
  12. ALLOPURINOL [Concomitant]
     Route: 048
     Dates: start: 20091217, end: 20091217
  13. VANCOMYCIN [Concomitant]
     Route: 042
     Dates: start: 20091215
  14. ZOSYN [Concomitant]
     Dosage: Q6 HOUR TO Q8 HOUR
     Route: 042
     Dates: start: 20091215, end: 20091216
  15. CEFEPIME [Concomitant]

REACTIONS (8)
  - DISCOMFORT [None]
  - DYSPNOEA [None]
  - ELECTROCARDIOGRAM QRS COMPLEX PROLONGED [None]
  - ELECTROCARDIOGRAM T WAVE PEAKED [None]
  - HAEMODYNAMIC INSTABILITY [None]
  - HYPERSENSITIVITY [None]
  - OXYGEN SATURATION DECREASED [None]
  - TACHYCARDIA [None]
